FAERS Safety Report 8611791 (Version 3)
Quarter: 2013Q1

REPORT INFORMATION
  Report Type: Spontaneous
  Country: US (occurrence: US)
  Receive Date: 20120613
  Receipt Date: 20130104
  Transmission Date: 20140127
  Serious: No
  Sender: FDA-Public Use
  Company Number: US-ASTRAZENECA-2011SE41690

PATIENT
  Age: 45 Year
  Sex: Female

DRUGS (3)
  1. RHINOCORT AQUA [Suspect]
     Route: 045
  2. ALLEGRA [Concomitant]
  3. NASONEX [Concomitant]

REACTIONS (11)
  - Cerebral atrophy [Unknown]
  - Arthritis [Unknown]
  - Thinking abnormal [Unknown]
  - Confusional state [Unknown]
  - Mobility decreased [Unknown]
  - Fibromyalgia [Unknown]
  - Migraine [Unknown]
  - Nervous system disorder [Unknown]
  - Memory impairment [Unknown]
  - Therapeutic response unexpected [Unknown]
  - Drug dose omission [Unknown]
